FAERS Safety Report 9432764 (Version 1)
Quarter: 2013Q3

REPORT INFORMATION
  Report Type: Spontaneous
  Country: IT (occurrence: IT)
  Receive Date: 20130731
  Receipt Date: 20130731
  Transmission Date: 20140515
  Serious: Yes (Other)
  Sender: FDA-Public Use
  Company Number: IT-TEVA-421632ISR

PATIENT
  Age: 50 Year
  Sex: Male
  Weight: 70 kg

DRUGS (7)
  1. FLUOROURACILE TEVA [Suspect]
     Indication: COLON CANCER
     Dosage: 579,2 MG CYCLICAL
     Route: 041
     Dates: start: 20120607, end: 20121030
  2. FLUOROURACILE TEVA [Suspect]
     Dosage: 868,8 MG CYCLICAL
     Route: 042
     Dates: start: 20120607, end: 20121030
  3. OXALIPLATINO HOSPIRA [Suspect]
     Indication: COLON CANCER
     Dosage: 123,1 MG CYCLICAL
     Route: 042
     Dates: start: 20120607, end: 20121030
  4. SOLDESAM [Concomitant]
     Dosage: 8 MILLIGRAM DAILY;
     Route: 042
  5. ONDANSETRONE HIKMA [Concomitant]
     Dosage: 8 MILLIGRAM DAILY;
     Route: 042
  6. RANIDIL [Concomitant]
     Dosage: 50 MILLIGRAM DAILY;
     Route: 042
  7. LEVOFOLENE [Concomitant]
     Dosage: 144.8 MILLIGRAM DAILY;
     Route: 042

REACTIONS (10)
  - Diarrhoea [Unknown]
  - Nausea [Unknown]
  - Vomiting [Unknown]
  - Stomatitis [Unknown]
  - Dyspnoea [Unknown]
  - Fatigue [Unknown]
  - Formication [Unknown]
  - Dysphagia [Unknown]
  - Hypoaesthesia [Unknown]
  - Skin lesion [Unknown]
